FAERS Safety Report 17794138 (Version 1)
Quarter: 2020Q2

REPORT INFORMATION
  Report Type: Spontaneous
  Country: FI (occurrence: FI)
  Receive Date: 20200515
  Receipt Date: 20200515
  Transmission Date: 20200714
  Serious: Yes (Life-Threatening)
  Sender: FDA-Public Use
  Company Number: FI-JNJFOC-20200505193

PATIENT
  Age: 88 Year
  Sex: Male

DRUGS (16)
  1. TAMSULOSIN HYDROCHLORIDE. [Concomitant]
     Active Substance: TAMSULOSIN HYDROCHLORIDE
     Dosage: 0.4 MG, QD
     Route: 048
     Dates: start: 20140224
  2. PANADOL FORTE [PARACETAMOL] [Concomitant]
     Dosage: 2 G, QD
     Route: 048
     Dates: start: 20120716
  3. HEINIX [Concomitant]
     Active Substance: CETIRIZINE HYDROCHLORIDE
     Dosage: UNK
     Route: 048
     Dates: start: 20181120
  4. DIVISUN [Concomitant]
     Active Substance: CHOLECALCIFEROL
     Dosage: UNK
     Route: 048
     Dates: start: 20190126
  5. VOLTAREN FORTE [DICLOFENAC DIETHYLAMINE] [Concomitant]
     Dosage: UNK, PRN
     Route: 061
     Dates: start: 20150724
  6. HYDANTIN [PHENYTOIN] [Concomitant]
     Dosage: UNK
     Route: 048
     Dates: start: 20190423
  7. NASONEX [Concomitant]
     Active Substance: MOMETASONE FUROATE
     Dosage: UNK, PRN
     Route: 045
     Dates: start: 20181005
  8. PIMAFUCORT [HYDROCORTISONE;NATAMYCIN;NEOMYCIN SULFATE] [Concomitant]
     Dosage: UNK, PRN
     Route: 061
     Dates: start: 20200324
  9. ELOCON [Concomitant]
     Active Substance: MOMETASONE FUROATE
     Dosage: UNK, PRN
     Route: 061
     Dates: start: 20181120
  10. RIVAROXABAN [Suspect]
     Active Substance: RIVAROXABAN
     Indication: ATRIAL FIBRILLATION
     Dosage: 20 MG, QD
     Route: 048
     Dates: start: 20200303, end: 20200407
  11. ROSUVASTATIN ACCORD [Concomitant]
     Active Substance: ROSUVASTATIN
     Dosage: 5 MG, QD
     Route: 048
     Dates: start: 20190114
  12. ENANTONE MONATS-DEPOT [Concomitant]
     Active Substance: LEUPROLIDE ACETATE
     Dosage: 11.2 MG
     Dates: start: 20150908
  13. DIPROSALIC [Concomitant]
     Active Substance: BETAMETHASONE DIPROPIONATE
     Dosage: UNK, PRN
     Route: 061
     Dates: start: 20160401
  14. GLUCOSAMIN ORION [GLUCOSAMINE SULFATE POTASSIUM CHLORIDE] [Concomitant]
     Dosage: 800 MG, QD
     Route: 048
     Dates: start: 20120716
  15. MIRTAZAPIN RATIOPHARM [Concomitant]
     Dosage: UNK, PRN
     Route: 048
     Dates: start: 20130829
  16. MACROGOL;POTASSIUM CHLORIDE;SODIUM BICARBONATE;SODIUM CHLORIDE [Concomitant]
     Active Substance: POLYETHYLENE GLYCOL\POTASSIUM CHLORIDE\SODIUM BICARBONATE\SODIUM CHLORIDE
     Dosage: UNK, PRN
     Route: 048
     Dates: start: 20190111

REACTIONS (2)
  - Hepatic enzyme increased [Unknown]
  - Jaundice [Unknown]

NARRATIVE: CASE EVENT DATE: 20200406
